FAERS Safety Report 11043675 (Version 1)
Quarter: 2015Q2

REPORT INFORMATION
  Report Type: Spontaneous
  Country: KR (occurrence: KR)
  Receive Date: 20150417
  Receipt Date: 20150417
  Transmission Date: 20150821
  Serious: Yes (Death)
  Sender: FDA-Public Use
  Company Number: KR-OTSUKA-US-2015-11625

PATIENT

DRUGS (1)
  1. DACOGEN [Suspect]
     Active Substance: DECITABINE
     Indication: ACUTE MYELOID LEUKAEMIA
     Dosage: UNK, UNKNOWN
     Route: 042

REACTIONS (2)
  - Drug ineffective [Unknown]
  - Death [Fatal]
